FAERS Safety Report 24431088 (Version 2)
Quarter: 2024Q4

REPORT INFORMATION
  Report Type: Spontaneous
  Country: US (occurrence: US)
  Receive Date: 20241014
  Receipt Date: 20241024
  Transmission Date: 20250115
  Serious: Yes (Life-Threatening, Hospitalization)
  Sender: TEVA
  Company Number: US-TEVA-VS-3252866

PATIENT
  Age: 57 Year
  Sex: Male

DRUGS (1)
  1. PREDNISONE [Suspect]
     Active Substance: PREDNISONE
     Indication: Focal segmental glomerulosclerosis
     Dosage: HIGH DOSE
     Route: 065

REACTIONS (4)
  - Disseminated strongyloidiasis [Recovering/Resolving]
  - Meningitis enterococcal [Unknown]
  - Sepsis [Unknown]
  - Bacterial translocation [Unknown]
